FAERS Safety Report 12537945 (Version 1)
Quarter: 2016Q3

REPORT INFORMATION
  Report Type: Spontaneous
  Country: DE (occurrence: DE)
  Receive Date: 20160707
  Receipt Date: 20160707
  Transmission Date: 20161109
  Serious: Yes (Other)
  Sender: FDA-Public Use
  Company Number: DE-MYLANLABS-2016M1027344

PATIENT

DRUGS (8)
  1. BACLOFEN. [Concomitant]
     Active Substance: BACLOFEN
     Dosage: 5 MG, BID (DAILY DOSE: 10 MG MILLGRAM(S) EVERY DAYS)
     Route: 048
  2. CABERGOLINE. [Suspect]
     Active Substance: CABERGOLINE
     Indication: PROLACTIN-PRODUCING PITUITARY TUMOUR
     Dosage: 1 MG, UNK
     Dates: start: 201603
  3. GABAPENTIN. [Concomitant]
     Active Substance: GABAPENTIN
     Dosage: 100 MG, QD (DAILY DOSE: 100 MG MILLGRAM(S) EVERY DAYS)
     Route: 048
  4. LAMOTRIGIN [Concomitant]
     Active Substance: LAMOTRIGINE
     Dosage: 150 MG, BID (DAILY DOSE: 300 MG MILLGRAM(S) EVERY DAYS)
     Route: 048
  5. L-THYROXIN [Concomitant]
     Active Substance: LEVOTHYROXINE SODIUM
     Dosage: 100 ?G, QD (DAILY DOSE: 100 ?G MICROGRAM(S) EVERY DAYS)
     Route: 048
  6. FOLSAEURE [Concomitant]
     Active Substance: FOLIC ACID
     Dosage: 5 MG, QD (DAILY DOSE: 5 MG MILLGRAM(S) EVERY DAYS)
     Route: 048
  7. SIMVASTATIN. [Concomitant]
     Active Substance: SIMVASTATIN
     Dosage: 20 MG, QD (DAILY DOSE: 20 MG MILLGRAM(S) EVERY DAYS)
     Route: 048
  8. HYDROCORTISON                      /00028601/ [Concomitant]
     Active Substance: HYDROCORTISONE
     Dosage: 10 MG, TID (DAILY DOSE: 30 MG MILLGRAM(S) EVERY DAYS)
     Route: 048

REACTIONS (1)
  - Sleep apnoea syndrome [Recovered/Resolved]

NARRATIVE: CASE EVENT DATE: 20160513
